FAERS Safety Report 18955477 (Version 1)
Quarter: 2021Q1

REPORT INFORMATION
  Report Type: Spontaneous
  Country: BR (occurrence: BR)
  Receive Date: 20210301
  Receipt Date: 20210301
  Transmission Date: 20210420
  Serious: Yes (Hospitalization, Other)
  Sender: FDA-Public Use
  Company Number: BR-ELI_LILLY_AND_COMPANY-BR202102009837

PATIENT
  Age: 64 Year
  Sex: Male

DRUGS (3)
  1. HUMAN INSULIN (RDNA ORIGIN) NPH [Suspect]
     Active Substance: INSULIN HUMAN
     Indication: TYPE 2 DIABETES MELLITUS
     Dosage: 64 INTERNATIONAL UNIT, BID
     Route: 065
  2. HUMAN INSULIN (RDNA ORIGIN) NPH [Suspect]
     Active Substance: INSULIN HUMAN
     Dosage: 64 INTERNATIONAL UNIT, DAILY
     Route: 065
  3. GLYXAMBI [Suspect]
     Active Substance: EMPAGLIFLOZIN\LINAGLIPTIN
     Indication: TYPE 2 DIABETES MELLITUS
     Dosage: UNK, UNKNOWN
     Route: 065
     Dates: start: 202102

REACTIONS (2)
  - Diabetic ketoacidosis [Recovering/Resolving]
  - Diarrhoea [Recovering/Resolving]
